FAERS Safety Report 5262142-0 (Version None)
Quarter: 2007Q1

REPORT INFORMATION
  Report Type: 
  Country: None (occurrence: None)
  Receive Date: 20070311
  Receipt Date: 20070228
  Transmission Date: 20070707
  Serious: Yes (Other)
  Sender: FDA-Public Use
  Company Number: 2006UW11860

PATIENT
  Age: 47 Year
  Sex: Female
  Weight: 75.9 kg

DRUGS (7)
  1. SEROQUEL [Suspect]
     Indication: MENTAL DISORDER
     Route: 048
     Dates: start: 20000228
  2. ABILIFY [Concomitant]
  3. GEODON [Concomitant]
  4. HALDOL [Concomitant]
  5. RISPERDAL [Concomitant]
  6. ZYPREXA/SYMBYAX [Concomitant]
  7. MARIJUANA [Concomitant]

REACTIONS (3)
  - DIABETES MELLITUS [None]
  - MENTAL DISORDER [None]
  - PROSTHESIS USER [None]
